FAERS Safety Report 7258942-8 (Version None)
Quarter: 2011Q1

REPORT INFORMATION
  Report Type: 
  Country: None (occurrence: None)
  Receive Date: 20110129
  Receipt Date: 20100609
  Transmission Date: 20110831
  Serious: No
  Sender: FDA-Public Use
  Company Number: US-ABBOTT-10P-163-0651316-00

PATIENT
  Sex: Male
  Weight: 93.524 kg

DRUGS (2)
  1. HUMIRA [Suspect]
     Dates: start: 20090501, end: 20091001
  2. HUMIRA [Suspect]
     Indication: PSORIASIS
     Route: 050
     Dates: start: 20090401

REACTIONS (2)
  - PSORIASIS [None]
  - WEIGHT INCREASED [None]
